APPROVED DRUG PRODUCT: ROCEPHIN
Active Ingredient: CEFTRIAXONE SODIUM
Strength: EQ 2GM BASE/VIAL **Federal Register determination that product was not discontinued or withdrawn for safety or effectiveness reasons**
Dosage Form/Route: INJECTABLE;INTRAMUSCULAR, INTRAVENOUS
Application: N050585 | Product #004
Applicant: HOFFMANN LA ROCHE INC
Approved: Dec 21, 1984 | RLD: Yes | RS: No | Type: DISCN